FAERS Safety Report 17331333 (Version 4)
Quarter: 2020Q2

REPORT INFORMATION
  Report Type: Spontaneous
  Country: ES (occurrence: ES)
  Receive Date: 20200127
  Receipt Date: 20200408
  Transmission Date: 20200713
  Serious: Yes (Death, Hospitalization, Other)
  Sender: FDA-Public Use
  Company Number: ES-ALEXION-A202000912

PATIENT
  Age: 27 Year
  Sex: Male

DRUGS (1)
  1. SOLIRIS [Suspect]
     Active Substance: ECULIZUMAB
     Indication: ATYPICAL HAEMOLYTIC URAEMIC SYNDROME
     Dosage: UNK
     Route: 048
     Dates: start: 20160225, end: 20200104

REACTIONS (3)
  - Cardiac arrest [Unknown]
  - Shock [Unknown]
  - Meningococcal sepsis [Fatal]

NARRATIVE: CASE EVENT DATE: 20200104
